APPROVED DRUG PRODUCT: OXYTOCIN
Active Ingredient: OXYTOCIN
Strength: 300USP UNITS/30ML (10USP UNITS/ML)
Dosage Form/Route: INJECTABLE;INJECTION
Application: N018248 | Product #003
Applicant: FRESENIUS KABI USA LLC
Approved: Jul 27, 2007 | RLD: Yes | RS: Yes | Type: RX